FAERS Safety Report 15901575 (Version 1)
Quarter: 2019Q1

REPORT INFORMATION
  Report Type: Spontaneous
  Country: US (occurrence: US)
  Receive Date: 20190201
  Receipt Date: 20190201
  Transmission Date: 20190417
  Serious: Yes (Death)
  Sender: FDA-Public Use
  Company Number: None

PATIENT
  Age: 81 Year
  Sex: Male

DRUGS (23)
  1. HUMALOG [Concomitant]
     Active Substance: INSULIN LISPRO
  2. KLONOPIN [Concomitant]
     Active Substance: CLONAZEPAM
  3. ONETOUCH [Concomitant]
  4. PENTOXIFYLLI [Concomitant]
  5. PREDNISONE. [Concomitant]
     Active Substance: PREDNISONE
  6. PRINIVIL [Concomitant]
     Active Substance: LISINOPRIL
  7. PROGRAF [Concomitant]
     Active Substance: TACROLIMUS\TACROLIMUS ANHYDROUS
  8. INSULIN [Concomitant]
     Active Substance: INSULIN NOS
  9. CALCITRIOL. [Concomitant]
     Active Substance: CALCITRIOL
  10. AMBIEN [Concomitant]
     Active Substance: ZOLPIDEM TARTRATE
  11. FUROSEMIDE. [Concomitant]
     Active Substance: FUROSEMIDE
  12. LANTUS [Concomitant]
     Active Substance: INSULIN GLARGINE
  13. LISINOPRIL. [Concomitant]
     Active Substance: LISINOPRIL
  14. MYCOPHENOLIC [Concomitant]
     Active Substance: MYCOPHENOLIC ACID
  15. ACETYLCYST [Concomitant]
  16. TOPROL, VIAGRA [Concomitant]
  17. TACROLIMUS. [Suspect]
     Active Substance: TACROLIMUS
     Indication: LUNG TRANSPLANT
     Route: 048
     Dates: start: 20120309
  18. TACROLIMUS. [Suspect]
     Active Substance: TACROLIMUS
     Indication: LUNG TRANSPLANT
     Route: 048
     Dates: start: 20180925
  19. MAGNESIUM [Concomitant]
     Active Substance: MAGNESIUM
  20. MULTI [Concomitant]
  21. PANTOPRAZOLE [Concomitant]
     Active Substance: PANTOPRAZOLE
  22. CARTIA [Concomitant]
  23. LIPITOR [Concomitant]
     Active Substance: ATORVASTATIN CALCIUM

REACTIONS (1)
  - Death [None]

NARRATIVE: CASE EVENT DATE: 20190115
